FAERS Safety Report 20541877 (Version 2)
Quarter: 2022Q3

REPORT INFORMATION
  Report Type: Spontaneous
  Country: US (occurrence: US)
  Receive Date: 20220302
  Receipt Date: 20220808
  Transmission Date: 20221027
  Serious: Yes (Other)
  Sender: FDA-Public Use
  Company Number: US-JNJFOC-20211215273

PATIENT
  Age: 50 Year
  Sex: Female

DRUGS (8)
  1. ELMIRON [Suspect]
     Active Substance: PENTOSAN POLYSULFATE SODIUM
     Indication: Cystitis interstitial
     Dosage: 600 MG PER DAY
     Route: 048
     Dates: start: 20040417, end: 20141031
  2. ELMIRON [Suspect]
     Active Substance: PENTOSAN POLYSULFATE SODIUM
     Dosage: 600 MG PER DAY
     Route: 048
     Dates: start: 20141212, end: 20150823
  3. ELMIRON [Suspect]
     Active Substance: PENTOSAN POLYSULFATE SODIUM
     Dosage: 600 MG PER DAY
     Route: 048
     Dates: start: 20150923, end: 20151221
  4. ELMIRON [Suspect]
     Active Substance: PENTOSAN POLYSULFATE SODIUM
     Dosage: 600 MG PER DAY
     Route: 048
     Dates: start: 201701, end: 20170627
  5. ELMIRON [Suspect]
     Active Substance: PENTOSAN POLYSULFATE SODIUM
     Dosage: 600 MG PER DAY
     Route: 048
     Dates: start: 20170621, end: 20171007
  6. ELMIRON [Suspect]
     Active Substance: PENTOSAN POLYSULFATE SODIUM
     Dosage: 600 MG PER DAY
     Route: 048
     Dates: start: 20171219, end: 20180408
  7. ELMIRON [Suspect]
     Active Substance: PENTOSAN POLYSULFATE SODIUM
     Dosage: 600 MG PER DAY
     Route: 048
     Dates: start: 20180710, end: 20190816
  8. ZOLPIDEM [Concomitant]
     Active Substance: ZOLPIDEM TARTRATE
     Indication: Sleep disorder
     Dosage: SLEEP AID AS NEEDED
     Dates: start: 20170817, end: 20171002

REACTIONS (2)
  - Maculopathy [Unknown]
  - Off label use [Unknown]

NARRATIVE: CASE EVENT DATE: 20040417
